FAERS Safety Report 7204108-7 (Version None)
Quarter: 2010Q4

REPORT INFORMATION
  Report Type: 
  Country: None (occurrence: None)
  Receive Date: 20101230
  Receipt Date: 20101228
  Transmission Date: 20110411
  Serious: Yes (Death, Disabling)
  Sender: FDA-Public Use
  Company Number: JP-ROCHE-686971

PATIENT
  Sex: Male
  Weight: 67 kg

DRUGS (3)
  1. XELODA [Suspect]
     Indication: COLON CANCER METASTATIC
     Route: 048
     Dates: start: 20091217, end: 20100217
  2. AVASTIN [Suspect]
     Indication: COLON CANCER METASTATIC
     Route: 041
     Dates: start: 20091217, end: 20100217
  3. ELPLAT [Suspect]
     Indication: COLON CANCER METASTATIC
     Dosage: DOSE, FREQUENCY UNSPECIFIED.
     Route: 041
     Dates: start: 20091217, end: 20100217

REACTIONS (2)
  - DISEASE PROGRESSION [None]
  - NEPHROTIC SYNDROME [None]
